FAERS Safety Report 7439535-6 (Version None)
Quarter: 2011Q2

REPORT INFORMATION
  Report Type: 
  Country: None (occurrence: None)
  Receive Date: 20110427
  Receipt Date: 20110420
  Transmission Date: 20111010
  Serious: Yes (Other)
  Sender: FDA-Public Use
  Company Number: DE-BRISTOL-MYERS SQUIBB COMPANY-15690845

PATIENT
  Age: 47 Year
  Sex: Male

DRUGS (5)
  1. VICTOZA [Concomitant]
  2. METFORMIN [Concomitant]
     Indication: TYPE 2 DIABETES MELLITUS
  3. APROVEL FILM-COATED TABS [Suspect]
     Indication: HYPERTENSION
     Dosage: UNK DOSE TO INCREASED TO 600MG,THEN DECREASED TO 300MG,UNK-2011,2011-UNK
     Route: 048
     Dates: end: 20110101
  4. AMLODIPINE [Concomitant]
     Indication: HYPERTENSION
  5. HYDROCHLOROTHIAZIDE [Concomitant]
     Indication: HYPERTENSION

REACTIONS (1)
  - EYE HAEMORRHAGE [None]
